FAERS Safety Report 12572908 (Version 1)
Quarter: 2016Q3

REPORT INFORMATION
  Report Type: Spontaneous
  Country: FR (occurrence: FR)
  Receive Date: 20160720
  Receipt Date: 20160720
  Transmission Date: 20161109
  Serious: Yes (Hospitalization)
  Sender: FDA-Public Use
  Company Number: FR-ACCORD-042528

PATIENT
  Age: 78 Year
  Sex: Male
  Weight: 56 kg

DRUGS (21)
  1. CITALOPRAM [Concomitant]
     Active Substance: CITALOPRAM HYDROBROMIDE
  2. BISOCE [Concomitant]
     Active Substance: BISOPROLOL
     Indication: CARDIAC FAILURE
  3. ARAVA [Interacting]
     Active Substance: LEFLUNOMIDE
     Indication: COLORECTAL ADENOCARCINOMA
     Dosage: DOSE DECREASE TO 10 MG
     Route: 048
     Dates: start: 2002, end: 20160525
  4. FLAGYL [Interacting]
     Active Substance: METRONIDAZOLE\METRONIDAZOLE HYDROCHLORIDE
     Indication: COLORECTAL ADENOCARCINOMA
     Route: 048
     Dates: start: 20160523, end: 20160527
  5. CEFOTAXIME [Interacting]
     Active Substance: CEFOTAXIME SODIUM
     Indication: COLORECTAL ADENOCARCINOMA
     Route: 042
     Dates: start: 20160523, end: 20160530
  6. CORTANCYL [Concomitant]
     Active Substance: PREDNISONE
  7. INEXIUM [Concomitant]
     Active Substance: ESOMEPRAZOLE
  8. STILNOX [Concomitant]
     Active Substance: ZOLPIDEM TARTRATE
  9. INNOHEP [Concomitant]
     Active Substance: TINZAPARIN SODIUM
     Dosage: DOSE EQUILIBRATED TO THE INTERNATIONAL NORMALIZED RATIO
     Route: 058
  10. TAZOCILLINE [Concomitant]
     Active Substance: PIPERACILLIN SODIUM\TAZOBACTAM SODIUM
     Indication: GASTROENTERITIS
  11. FLUOROURACIL ACCORD [Suspect]
     Active Substance: FLUOROURACIL
     Indication: COLORECTAL ADENOCARCINOMA
     Dosage: RECEIVED SECOND COURSE 3000 MG/M^2 FOR 48 HOURS I.E. 4500 MG OF FLUOROURACIL.
     Route: 042
     Dates: start: 20160512, end: 20160513
  12. ZAMUDOL [Concomitant]
     Active Substance: TRAMADOL HYDROCHLORIDE
     Dosage: STRENGTH: 100
  13. LASILIX [Concomitant]
     Active Substance: FUROSEMIDE
  14. ARANESP [Concomitant]
     Active Substance: DARBEPOETIN ALFA
  15. TRIATEC [Concomitant]
     Active Substance: RAMIPRIL
     Indication: CARDIAC FAILURE
  16. PHYTOMENADIONE [Concomitant]
     Active Substance: PHYTONADIONE
     Route: 042
  17. CALCIDOSE [Concomitant]
     Active Substance: CALCIUM CARBONATE
     Dosage: 1 SACHET EVERY DAY
  18. FUMAFER [Concomitant]
     Active Substance: FERROUS FUMARATE
     Dosage: 1 TABLET TWICE A DAY
  19. CALCIUM FOLINATE [Suspect]
     Active Substance: LEUCOVORIN CALCIUM
     Indication: COLORECTAL ADENOCARCINOMA
     Dosage: SECOND COURSE ON 600 MG?RECEIVED FIRST COURSE ON 29-APR-2016
     Dates: start: 20160512
  20. CALCIPARINE [Concomitant]
     Active Substance: HEPARIN CALCIUM
     Indication: PROPHYLAXIS
     Route: 058
  21. FOLIC ACID. [Concomitant]
     Active Substance: FOLIC ACID

REACTIONS (12)
  - Drug interaction [Unknown]
  - Chills [Recovered/Resolved]
  - Hyperthermia [Unknown]
  - Vomiting [Recovered/Resolved]
  - Eosinophilia [Recovered/Resolved]
  - Diarrhoea [Recovering/Resolving]
  - Renal impairment [Unknown]
  - Pruritus [Recovered/Resolved]
  - Toxic skin eruption [Unknown]
  - Condition aggravated [Unknown]
  - Nausea [Recovered/Resolved]
  - Drug eruption [Recovered/Resolved]

NARRATIVE: CASE EVENT DATE: 20160518
